FAERS Safety Report 9845482 (Version 1)
Quarter: 2014Q1

REPORT INFORMATION
  Report Type: Spontaneous
  Country: QA (occurrence: SA)
  Receive Date: 20140127
  Receipt Date: 20140127
  Transmission Date: 20141002
  Serious: Yes (Death)
  Sender: FDA-Public Use
  Company Number: US-PFIZER INC-2014019944

PATIENT
  Age: 42 Year
  Sex: Male

DRUGS (3)
  1. FLUCONAZOLE [Suspect]
     Indication: PHAEHYPHOMYCOSIS
     Dosage: 400 MG, DAILY
     Dates: start: 1997
  2. AMPHOTERICIN [Suspect]
     Indication: PHAEHYPHOMYCOSIS
     Dosage: 30 MG, DAILY
     Dates: start: 1997
  3. ITRACONAZOLE [Suspect]
     Indication: PHAEHYPHOMYCOSIS
     Dosage: 200 MG
     Dates: start: 1997

REACTIONS (1)
  - Drug ineffective [Fatal]
